FAERS Safety Report 13906192 (Version 1)
Quarter: 2017Q3

REPORT INFORMATION
  Report Type: Spontaneous
  Country: CN (occurrence: CN)
  Receive Date: 20170825
  Receipt Date: 20170825
  Transmission Date: 20171127
  Serious: Yes (Other)
  Sender: FDA-Public Use
  Company Number: CN-ARALEZ PHARMACEUTICALS RD INC.-2017-ARA-000331

PATIENT

DRUGS (2)
  1. METOPROLOL SUCCINATE. [Suspect]
     Active Substance: METOPROLOL SUCCINATE
     Indication: ARRHYTHMIA
     Dosage: 47.5 MG, QD
     Route: 048
     Dates: start: 20170417, end: 20170421
  2. CHINESE TRADITIONAL MEDICINE NOS [Suspect]
     Active Substance: UNSPECIFIED INGREDIENT
     Indication: ARRHYTHMIA
     Dosage: 1.2 G, TID
     Route: 065
     Dates: start: 20170417, end: 20170421

REACTIONS (2)
  - Tachypnoea [Unknown]
  - Pain [Unknown]

NARRATIVE: CASE EVENT DATE: 201704
